FAERS Safety Report 26011531 (Version 1)
Quarter: 2025Q4

REPORT INFORMATION
  Report Type: Spontaneous
  Country: US (occurrence: None)
  Receive Date: 20251107
  Receipt Date: 20251107
  Transmission Date: 20260118
  Serious: Yes (Hospitalization)
  Sender: FDA-CTU
  Company Number: None

PATIENT
  Age: 65 Year
  Sex: Male

DRUGS (1)
  1. TOLVAPTAN [Suspect]
     Active Substance: TOLVAPTAN
     Indication: Blood osmolarity decreased
     Dosage: OTHER FREQUENCY : MWF;?
     Route: 048
     Dates: start: 20240628

REACTIONS (3)
  - Pneumonia aspiration [None]
  - Blood sodium decreased [None]
  - Therapy interrupted [None]

NARRATIVE: CASE EVENT DATE: 20251014
